FAERS Safety Report 24116658 (Version 1)
Quarter: 2024Q3

REPORT INFORMATION
  Report Type: Spontaneous
  Country: US (occurrence: US)
  Receive Date: 20240722
  Receipt Date: 20240722
  Transmission Date: 20241016
  Serious: No
  Sender: ASTELLAS
  Company Number: US-ASTELLAS-2024US014669

PATIENT
  Age: 83 Year
  Sex: Female

DRUGS (1)
  1. MYRBETRIQ [Suspect]
     Active Substance: MIRABEGRON
     Indication: Product used for unknown indication
     Dosage: 50 MG, ONCE DAILY (TWO 25MG TABLETS)
     Route: 065
     Dates: start: 20240518

REACTIONS (2)
  - Headache [Unknown]
  - Dysuria [Unknown]

NARRATIVE: CASE EVENT DATE: 20240520
